FAERS Safety Report 6269527-4 (Version None)
Quarter: 2009Q3

REPORT INFORMATION
  Report Type: 
  Country: None (occurrence: None)
  Receive Date: 20090715
  Receipt Date: 20090224
  Transmission Date: 20100115
  Serious: No
  Sender: FDA-Public Use
  Company Number: US-TYCO HEALTHCARE/MALLINCKRODT-T200900566

PATIENT
  Sex: Female
  Weight: 95.692 kg

DRUGS (2)
  1. OXYCODONE HCL [Suspect]
     Indication: BREAKTHROUGH PAIN
     Dosage: 2 AS NEEDED,  UP TO 6/DAY
     Route: 048
  2. METHADONE HCL [Concomitant]
     Indication: NECK PAIN
     Dosage: 5 MG, BID

REACTIONS (2)
  - BURNING SENSATION [None]
  - MUSCLE SPASMS [None]
